FAERS Safety Report 16854697 (Version 1)
Quarter: 2019Q3

REPORT INFORMATION
  Report Type: Spontaneous
  Country: JP (occurrence: JP)
  Receive Date: 20190926
  Receipt Date: 20190926
  Transmission Date: 20191005
  Serious: Yes (Hospitalization)
  Sender: FDA-Public Use
  Company Number: JP-SA-2019SA261367

PATIENT
  Age: 47 Year
  Sex: Male
  Weight: 50.74 kg

DRUGS (11)
  1. INCHINKOTO [Concomitant]
     Active Substance: UNSPECIFIED INGREDIENT
     Route: 048
  2. ELPLAT [Suspect]
     Active Substance: OXALIPLATIN
     Indication: PANCREATIC MASS
     Dosage: 135 MG, QD
     Route: 041
     Dates: start: 20190416, end: 20190416
  3. CALCIUM LEVOFOLINATE [Suspect]
     Active Substance: LEVOLEUCOVORIN CALCIUM
     Indication: PANCREATIC MASS
     Dosage: 320 MG, QD
     Route: 041
     Dates: start: 20190416, end: 20190416
  4. DEXAMETHASONE SODIUM PHOSPHATE. [Concomitant]
     Active Substance: DEXAMETHASONE SODIUM PHOSPHATE
  5. URSODEOXYCHOLIC ACID [Concomitant]
     Active Substance: URSODIOL
     Route: 048
  6. SULBACTAM SODIUM [Concomitant]
     Active Substance: SULBACTAM SODIUM
  7. IRINOTECAN [Suspect]
     Active Substance: IRINOTECAN
     Indication: PANCREATIC MASS
     Dosage: 280 MG, QD
     Route: 041
     Dates: start: 20190416, end: 20190416
  8. ELPLAT [Suspect]
     Active Substance: OXALIPLATIN
     Indication: JAUNDICE CHOLESTATIC
  9. ALOXI [Concomitant]
     Active Substance: PALONOSETRON HYDROCHLORIDE
     Dosage: UNK
     Dates: start: 20190416, end: 20190416
  10. MONOAMMONIUM GLYCYRRHIZINATE [Concomitant]
     Active Substance: AMMONIUM GLYCYRRHIZATE
  11. PROEMEND [Concomitant]
     Active Substance: FOSAPREPITANT
     Dosage: UNK
     Dates: start: 20190416, end: 20190416

REACTIONS (2)
  - Injection related reaction [Recovering/Resolving]
  - Cholinergic syndrome [Recovering/Resolving]

NARRATIVE: CASE EVENT DATE: 20190416
